FAERS Safety Report 22163988 (Version 1)
Quarter: 2023Q2

REPORT INFORMATION
  Report Type: Spontaneous
  Country: US (occurrence: US)
  Receive Date: 20230402
  Receipt Date: 20230402
  Transmission Date: 20230722
  Serious: Yes (Death)
  Sender: FDA-Public Use
  Company Number: US-CTI BIOPHARMA-2023US03482

PATIENT

DRUGS (8)
  1. VONJO [Suspect]
     Active Substance: PACRITINIB
     Indication: Myelofibrosis
     Dosage: 200 MG, BID
     Route: 048
     Dates: start: 20230131
  2. OXYMETAZOLINE [Concomitant]
     Active Substance: OXYMETAZOLINE
  3. ALLOPURINOL [Concomitant]
     Active Substance: ALLOPURINOL
  4. POTASSIUM [Concomitant]
     Active Substance: POTASSIUM
  5. AZITHROMYCIN [Concomitant]
     Active Substance: AZITHROMYCIN
  6. EPOETIN ALFA [Concomitant]
     Active Substance: ERYTHROPOIETIN
  7. ARANESP [Concomitant]
     Active Substance: DARBEPOETIN ALFA
  8. JADENU [Concomitant]
     Active Substance: DEFERASIROX

REACTIONS (1)
  - Death [Fatal]

NARRATIVE: CASE EVENT DATE: 20230101
